FAERS Safety Report 5035066-1 (Version None)
Quarter: 2006Q2

REPORT INFORMATION
  Report Type: 
  Country: None (occurrence: None)
  Receive Date: 20060622
  Receipt Date: 20060622
  Transmission Date: 20061013
  Serious: Yes (Hospitalization)
  Sender: FDA-Public Use
  Company Number: None

PATIENT
  Sex: Female

DRUGS (2)
  1. ALIMTA [Suspect]
     Indication: NEOPLASM MALIGNANT
     Dosage: 200 MG/M2 IV EVERY 3 WEEKS
     Route: 042
     Dates: start: 20060524
  2. ERBITUX [Suspect]
     Dosage: 380 MG/M2 IV WEEKLY
     Route: 042
     Dates: start: 20060517

REACTIONS (3)
  - DYSPHAGIA [None]
  - MUCOSAL INFLAMMATION [None]
  - POST PROCEDURAL COMPLICATION [None]
